FAERS Safety Report 20034332 (Version 1)
Quarter: 2021Q4

REPORT INFORMATION
  Report Type: Spontaneous
  Country: IT (occurrence: IT)
  Receive Date: 20211104
  Receipt Date: 20211104
  Transmission Date: 20220303
  Serious: Yes (Hospitalization)
  Sender: FDA-Public Use
  Company Number: None

PATIENT
  Age: 82 Year
  Sex: Female

DRUGS (1)
  1. ATORVASTATIN [Suspect]
     Active Substance: ATORVASTATIN
     Indication: Hypercholesterolaemia
     Dosage: 20 MG, 1X/DAY
     Route: 048
     Dates: end: 20211013

REACTIONS (4)
  - Myalgia [Unknown]
  - Asthenia [Unknown]
  - Transaminases increased [Unknown]
  - Blood creatine phosphokinase abnormal [Unknown]

NARRATIVE: CASE EVENT DATE: 20211009
